FAERS Safety Report 15931100 (Version 1)
Quarter: 2019Q1

REPORT INFORMATION
  Report Type: Spontaneous
  Country: US (occurrence: US)
  Receive Date: 20190207
  Receipt Date: 20190207
  Transmission Date: 20190417
  Serious: No
  Sender: FDA-Public Use
  Company Number: None

PATIENT
  Age: 56 Year
  Sex: Male
  Weight: 83.25 kg

DRUGS (1)
  1. XARELTO [Suspect]
     Active Substance: RIVAROXABAN
     Indication: PULMONARY EMBOLISM
     Dosage: ?          QUANTITY:1 TABLET(S);?
     Route: 048
     Dates: start: 20181007, end: 20190115

REACTIONS (7)
  - Tremor [None]
  - Appetite disorder [None]
  - Sleep disorder [None]
  - Asthenia [None]
  - Heart rate increased [None]
  - Somnolence [None]
  - Hypoglycaemia [None]

NARRATIVE: CASE EVENT DATE: 20190115
